FAERS Safety Report 4544292-7 (Version None)
Quarter: 2004Q4

REPORT INFORMATION
  Report Type: 
  Country: None (occurrence: None)
  Receive Date: 20041230
  Receipt Date: 20041218
  Transmission Date: 20050328
  Serious: Yes (Other)
  Sender: FDA-Public Use
  Company Number: ACO_0034_2004

PATIENT
  Age: 49 Year
  Sex: Female

DRUGS (4)
  1. SIRDALUD - SLOW RELEASE [Suspect]
     Indication: HEMIPLEGIA
     Dosage: 6 MG DAILY PO
     Route: 048
     Dates: start: 20040901
  2. SIRDALUD [Suspect]
     Indication: HEMIPLEGIA
     Dosage: 4 MG DAILY PO
     Route: 048
     Dates: start: 20020101, end: 20040901
  3. ZOCOR [Suspect]
     Indication: HYPERLIPIDAEMIA
     Dosage: 80 MG QDAY PO
     Route: 048
     Dates: start: 20040901
  4. ZOCOR [Suspect]
     Indication: HYPERLIPIDAEMIA
     Dosage: 40 MG BID PO
     Route: 048
     Dates: end: 20040901

REACTIONS (3)
  - APHASIA [None]
  - DRUG INTERACTION [None]
  - EPILEPSY [None]
